FAERS Safety Report 13594527 (Version 1)
Quarter: 2017Q2

REPORT INFORMATION
  Report Type: Spontaneous
  Country: FR (occurrence: FR)
  Receive Date: 20170530
  Receipt Date: 20170530
  Transmission Date: 20170830
  Serious: Yes (Death, Hospitalization, Other)
  Sender: FDA-Public Use
  Company Number: FR-ACCORD-051855

PATIENT
  Age: 71 Year
  Sex: Female

DRUGS (11)
  1. IRINOTECAN FRESENIUS [Suspect]
     Active Substance: IRINOTECAN
     Indication: PRODUCT USED FOR UNKNOWN INDICATION
     Dosage: 20 MG/ML
     Route: 042
     Dates: start: 20170106, end: 20170106
  2. METHYLPREDNISOLONE. [Concomitant]
     Active Substance: METHYLPREDNISOLONE
  3. SECTRAL [Concomitant]
     Active Substance: ACEBUTOLOL HYDROCHLORIDE
  4. OXALIPLATINE FRESENIUS [Suspect]
     Active Substance: OXALIPLATIN
     Indication: PRODUCT USED FOR UNKNOWN INDICATION
     Dosage: 5 MG/ML
     Route: 042
     Dates: start: 20170105, end: 20170105
  5. ALLOPURINOL. [Concomitant]
     Active Substance: ALLOPURINOL
  6. TRAMADOL. [Concomitant]
     Active Substance: TRAMADOL
  7. FOLINIC ACID [Concomitant]
     Active Substance: LEUCOVORIN
  8. ONDANSETRON [Concomitant]
     Active Substance: ONDANSETRON
  9. ATROPINE. [Concomitant]
     Active Substance: ATROPINE
  10. FLUOROURACILE [Suspect]
     Active Substance: FLUOROURACIL
     Indication: PRODUCT USED FOR UNKNOWN INDICATION
     Dosage: 650 MG BOLUS THEN 1000 MG VIA A DIFFUSER. ?50 MG/ML
     Route: 042
     Dates: start: 20170105, end: 20170106
  11. MOVICOL [Concomitant]
     Active Substance: POLYETHYLENE GLYCOL 3350\POTASSIUM CHLORIDE\SODIUM BICARBONATE\SODIUM CHLORIDE

REACTIONS (15)
  - Febrile bone marrow aplasia [Unknown]
  - Acute respiratory distress syndrome [Unknown]
  - Neutropenia [Fatal]
  - Urinary retention [Unknown]
  - Septic shock [Fatal]
  - Abdominal pain [None]
  - Thrombocytopenia [Fatal]
  - Livedo reticularis [None]
  - Cardiac failure [Unknown]
  - Pruritus [None]
  - Coma [Unknown]
  - Lactic acidosis [Unknown]
  - Pulmonary alveolar haemorrhage [Fatal]
  - Asthenia [None]
  - Pupillary reflex impaired [None]

NARRATIVE: CASE EVENT DATE: 20170113
